FAERS Safety Report 20734090 (Version 1)
Quarter: 2022Q2

REPORT INFORMATION
  Report Type: Spontaneous
  Country: IT (occurrence: IT)
  Receive Date: 20220421
  Receipt Date: 20220421
  Transmission Date: 20220720
  Serious: Yes (Other)
  Sender: FDA-Public Use
  Company Number: None

PATIENT
  Age: 79 Year
  Sex: Female
  Weight: 73 kg

DRUGS (6)
  1. RAMIPRIL [Suspect]
     Active Substance: RAMIPRIL
     Indication: Hypertension
     Dosage: STRENGTH: 5 MG
     Route: 048
     Dates: start: 20210826, end: 20210902
  2. NORVASC [Suspect]
     Active Substance: AMLODIPINE BESYLATE
     Indication: Hypertension
     Dosage: STRENGTH: 10 MG
     Route: 048
     Dates: start: 20210826, end: 20210902
  3. ASPIRIN [Concomitant]
     Active Substance: ASPIRIN
     Indication: Thrombosis prophylaxis
     Route: 048
  4. CHOLECALCIFEROL [Concomitant]
     Active Substance: CHOLECALCIFEROL
     Indication: Type 2 diabetes mellitus
     Dosage: STRENGTH;  50.000 I.U./2.5 ML
  5. EMPAGLIFLOZIN, METFORMIN [Concomitant]
     Indication: Type 2 diabetes mellitus
     Dosage: STRENGTH: 12.5 MG / 850 MG
     Route: 048
  6. INSULIN GLARGINE [Concomitant]
     Active Substance: INSULIN GLARGINE
     Indication: Type 2 diabetes mellitus

REACTIONS (1)
  - Tachycardia [Recovered/Resolved]

NARRATIVE: CASE EVENT DATE: 20210902
